FAERS Safety Report 8386738-2 (Version None)
Quarter: 2012Q2

REPORT INFORMATION
  Report Type: 
  Country: None (occurrence: None)
  Receive Date: 20120525
  Receipt Date: 20120521
  Transmission Date: 20120825
  Serious: No
  Sender: FDA-Public Use
  Company Number: US-BAYER-2012-044254

PATIENT
  Age: 67 Year
  Sex: Female

DRUGS (2)
  1. NEXAVAR [Suspect]
     Indication: HEPATIC NEOPLASM MALIGNANT NON-RESECTABLE
     Dosage: 200 MG, BID
     Dates: start: 20120430
  2. NEXAVAR [Suspect]
     Dosage: 400 MG, BID
     Dates: end: 20120501

REACTIONS (14)
  - NAUSEA [None]
  - DIZZINESS [None]
  - HYPERTENSION [None]
  - DIARRHOEA [None]
  - THYROID DISORDER [None]
  - DYSPEPSIA [None]
  - FEELING ABNORMAL [None]
  - RASH [None]
  - MUSCLE SPASMS [None]
  - VULVOVAGINAL DISCOMFORT [None]
  - PAIN OF SKIN [None]
  - SKIN DISORDER [None]
  - MUSCULOSKELETAL DISCOMFORT [None]
  - CATARACT [None]
